FAERS Safety Report 5597613-0 (Version None)
Quarter: 2008Q1

REPORT INFORMATION
  Report Type: 
  Country: None (occurrence: None)
  Receive Date: 20080121
  Receipt Date: 20080111
  Transmission Date: 20080703
  Serious: Yes (Life-Threatening)
  Sender: FDA-Public Use
  Company Number: GB-ROCHE-541086

PATIENT
  Age: 71 Year
  Sex: Male
  Weight: 98 kg

DRUGS (7)
  1. CAPECITABINE [Suspect]
     Indication: ADENOCARCINOMA
     Route: 048
     Dates: start: 20070912, end: 20070917
  2. ALLOPURINOL [Interacting]
     Indication: GOUT
     Route: 048
     Dates: end: 20070912
  3. BUSPIRONE HCL [Concomitant]
     Indication: ANXIETY
     Route: 048
  4. CO-TENIDONE [Concomitant]
     Indication: HYPERTENSION
     Route: 048
  5. FEXOFENADINE [Concomitant]
     Route: 048
  6. MIXTARD HUMAN 70/30 [Concomitant]
     Route: 058
  7. OXALIPLATIN [Concomitant]
     Indication: ADENOCARCINOMA
     Route: 042

REACTIONS (4)
  - CHEST PAIN [None]
  - DRUG INTERACTION [None]
  - ELECTROCARDIOGRAM CHANGE [None]
  - MYOCARDIAL INFARCTION [None]
